FAERS Safety Report 23743032 (Version 2)
Quarter: 2024Q4

REPORT INFORMATION
  Report Type: Report from Study
  Country: US (occurrence: US)
  Receive Date: 20240415
  Receipt Date: 20241119
  Transmission Date: 20250115
  Serious: No
  Sender: PFIZER
  Company Number: US-PFIZER INC-202400085786

PATIENT
  Age: 19 Year
  Sex: Female

DRUGS (3)
  1. BRAFTOVI [Suspect]
     Active Substance: ENCORAFENIB
     Indication: Malignant melanoma
     Dosage: TAKE 4 CAPSULES BY MOUTH DAILY. DO NOT TAKE FIRST DOSE UNTIL DIRECTED BY CLINICAL TEAM
     Route: 048
  2. MEKTOVI [Suspect]
     Active Substance: BINIMETINIB
     Indication: Malignant melanoma
     Dosage: TAKE 2 TABLETS BY MOUTH 2 TIMES A DAY. DO NOT TAKE FIRST DOSE UNTIL DIRECTED BY CLINICAL TEAM
     Route: 048
  3. GABAPENTIN [Concomitant]
     Active Substance: GABAPENTIN

REACTIONS (1)
  - Nausea [Unknown]
